FAERS Safety Report 13403597 (Version 2)
Quarter: 2017Q2

REPORT INFORMATION
  Report Type: Report from Study
  Country: None (occurrence: FR)
  Receive Date: 20170404
  Receipt Date: 20170601
  Transmission Date: 20170830
  Serious: Yes (Other)
  Sender: FDA-Public Use
  Company Number: FR-ABBVIE-16P-056-1743750-00

PATIENT
  Sex: Male
  Weight: 80 kg

DRUGS (2)
  1. EXVIERA [Suspect]
     Active Substance: DASABUVIR
     Indication: CHRONIC HEPATITIS C
     Route: 048
     Dates: start: 20160907
  2. VIEKIRAX [Suspect]
     Active Substance: OMBITASVIR\PARITAPREVIR\RITONAVIR
     Indication: CHRONIC HEPATITIS C
     Route: 048
     Dates: start: 20160907

REACTIONS (14)
  - Bursitis [Unknown]
  - Decreased appetite [Unknown]
  - Arthralgia [Unknown]
  - Cachexia [Unknown]
  - Dyspnoea exertional [Recovered/Resolved]
  - Weight decreased [Unknown]
  - Nausea [Unknown]
  - Myalgia [Unknown]
  - Vomiting [Recovered/Resolved]
  - Asthenia [Unknown]
  - Prurigo [Recovered/Resolved]
  - Nodule [Unknown]
  - Diarrhoea [Unknown]
  - Pertussis [Unknown]
